FAERS Safety Report 25326645 (Version 2)
Quarter: 2025Q2

REPORT INFORMATION
  Report Type: Spontaneous
  Country: US (occurrence: US)
  Receive Date: 20250516
  Receipt Date: 20250625
  Transmission Date: 20250716
  Serious: Yes (Hospitalization, Other)
  Sender: SANOFI AVENTIS
  Company Number: US-SA-2025SA138036

PATIENT
  Age: 29 Year
  Sex: Female
  Weight: 76.36 kg

DRUGS (2)
  1. DUPIXENT [Suspect]
     Active Substance: DUPILUMAB
     Indication: Asthma
     Dosage: 300 MG, QOW
     Route: 058
  2. AIRSUPRA [Concomitant]
     Active Substance: ALBUTEROL SULFATE\BUDESONIDE

REACTIONS (5)
  - Asthma [Unknown]
  - Ankle operation [Unknown]
  - Sensitive skin [Unknown]
  - Infection [Unknown]
  - Rash [Unknown]

NARRATIVE: CASE EVENT DATE: 20250411
